FAERS Safety Report 6310306-7 (Version None)
Quarter: 2009Q3

REPORT INFORMATION
  Report Type: 
  Country: None (occurrence: None)
  Receive Date: 20090814
  Receipt Date: 20090808
  Transmission Date: 20100115
  Serious: Yes (Other)
  Sender: FDA-Public Use
  Company Number: PHHY2009MX33538

PATIENT
  Age: 73 Year
  Sex: Female

DRUGS (4)
  1. RASILEZ [Suspect]
     Indication: HYPERTENSION
     Dosage: 1 DF (300 MG) PER DAY
     Route: 048
     Dates: start: 20080701
  2. MICARDIS HCT [Concomitant]
  3. AMIODARONE HCL [Concomitant]
  4. ALDACTONE [Concomitant]

REACTIONS (8)
  - CONSTIPATION [None]
  - DIZZINESS [None]
  - FALL [None]
  - GASTROINTESTINAL INFLAMMATION [None]
  - HYPOTENSION [None]
  - JOINT DISLOCATION [None]
  - REBOUND EFFECT [None]
  - WEIGHT INCREASED [None]
